FAERS Safety Report 4723953-0 (Version None)
Quarter: 2005Q3

REPORT INFORMATION
  Report Type: 
  Country: None (occurrence: None)
  Receive Date: 20050721
  Receipt Date: 20050708
  Transmission Date: 20060218
  Serious: Yes (Hospitalization, Other)
  Sender: FDA-Public Use
  Company Number: 2005098917

PATIENT
  Sex: Male

DRUGS (4)
  1. VIAGRA [Suspect]
     Indication: ERECTILE DYSFUNCTION
     Dosage: 25 MG (25 MG AS NECESSARY ORAL
     Route: 048
     Dates: start: 19980101
  2. ATENOLOL [Concomitant]
  3. TERAZOSIN [Concomitant]
  4. LIPITOR [Concomitant]

REACTIONS (10)
  - ARTERIAL OCCLUSIVE DISEASE [None]
  - BLOOD PRESSURE SYSTOLIC INCREASED [None]
  - CHEST PAIN [None]
  - CORONARY ARTERY OCCLUSION [None]
  - CYANOPSIA [None]
  - DRUG EFFECT DECREASED [None]
  - MACULAR DEGENERATION [None]
  - THROMBOSIS [None]
  - VERTIGO [None]
  - VISUAL DISTURBANCE [None]
